FAERS Safety Report 25790875 (Version 1)
Quarter: 2025Q3

REPORT INFORMATION
  Report Type: Spontaneous
  Country: US (occurrence: None)
  Receive Date: 20250910
  Receipt Date: 20250910
  Transmission Date: 20251021
  Serious: Yes (Disabling)
  Sender: FDA-CTU
  Company Number: None

PATIENT
  Age: 68 Year
  Sex: Female
  Weight: 84.37 kg

DRUGS (8)
  1. CIBINQO [Suspect]
     Active Substance: ABROCITINIB
     Indication: Dermatitis
     Dosage: FREQUENCY : DAILY;?
     Route: 048
     Dates: start: 20250724, end: 20250825
  2. CIBINQO [Suspect]
     Active Substance: ABROCITINIB
     Indication: Psoriasis
  3. LIDOCAINE [Concomitant]
     Active Substance: LIDOCAINE
  4. MUPICOCIN [Concomitant]
  5. ACETAMINOPHEN - COD #3 TABLET [Concomitant]
  6. VALCYCLOVIR HCL [Concomitant]
  7. GABAPENTIN [Concomitant]
     Active Substance: GABAPENTIN
  8. DOXYCYCLINE HYCLATE [Concomitant]
     Active Substance: DOXYCYCLINE HYCLATE

REACTIONS (4)
  - Ocular discomfort [None]
  - Eyelid discolouration [None]
  - Eyelids pruritus [None]
  - Herpes zoster [None]
